FAERS Safety Report 5685840-3 (Version None)
Quarter: 2008Q1

REPORT INFORMATION
  Report Type: 
  Country: None (occurrence: None)
  Receive Date: 20080328
  Receipt Date: 20070920
  Transmission Date: 20080703
  Serious: No
  Sender: FDA-Public Use
  Company Number: US-BAYER-US-2007-035710

PATIENT
  Age: 21 Year
  Sex: Female
  Weight: 84 kg

DRUGS (2)
  1. MIRENA [Suspect]
     Indication: CONTRACEPTION
     Route: 015
     Dates: start: 20070918, end: 20070918
  2. DEPO-PROVERA [Concomitant]

REACTIONS (5)
  - ABDOMINAL PAIN LOWER [None]
  - COLD SWEAT [None]
  - NAUSEA [None]
  - SYNCOPE [None]
  - VOMITING [None]
